FAERS Safety Report 13444171 (Version 2)
Quarter: 2017Q2

REPORT INFORMATION
  Report Type: Spontaneous
  Country: TR (occurrence: TR)
  Receive Date: 20170414
  Receipt Date: 20170522
  Transmission Date: 20170830
  Serious: Yes (Other)
  Sender: FDA-Public Use
  Company Number: TR-UCBSA-2017014196

PATIENT
  Age: 34 Year
  Sex: Female

DRUGS (5)
  1. BENVIDA [Suspect]
     Active Substance: LACOSAMIDE
     Indication: EPILEPSY
     Dosage: 2 X 200 MG
     Route: 048
     Dates: start: 2015
  2. LAMICTAL [Suspect]
     Active Substance: LAMOTRIGINE
     Indication: EPILEPSY
     Dosage: 2 X 100 MG
     Route: 048
     Dates: start: 2007
  3. EFEXOR [Suspect]
     Active Substance: VENLAFAXINE HYDROCHLORIDE
     Indication: ANXIETY
     Dosage: 1 X 75 MG
     Route: 048
     Dates: start: 20160308, end: 20170110
  4. BENVIDA [Suspect]
     Active Substance: LACOSAMIDE
     Dosage: 2 X 150 MG
     Dates: start: 2017
  5. LAMICTAL [Suspect]
     Active Substance: LAMOTRIGINE
     Dosage: 2 X 150 MG
     Dates: start: 2017

REACTIONS (3)
  - Pregnancy [Unknown]
  - Abortion spontaneous [Unknown]
  - Multiple pregnancy [Recovered/Resolved]

NARRATIVE: CASE EVENT DATE: 2016
